FAERS Safety Report 18112882 (Version 1)
Quarter: 2020Q3

REPORT INFORMATION
  Report Type: Spontaneous
  Country: US (occurrence: US)
  Receive Date: 20200805
  Receipt Date: 20200805
  Transmission Date: 20201103
  Serious: No
  Sender: FDA-Public Use
  Company Number: US-ASTRAZENECA-2020SE96166

PATIENT
  Age: 800 Month
  Sex: Male

DRUGS (1)
  1. BYDUREON [Suspect]
     Active Substance: EXENATIDE
     Indication: BLOOD GLUCOSE ABNORMAL
     Dosage: 2.0MG UNKNOWN
     Route: 058
     Dates: start: 202004

REACTIONS (2)
  - Diabetes mellitus inadequate control [Unknown]
  - Device defective [Unknown]

NARRATIVE: CASE EVENT DATE: 202004
